FAERS Safety Report 8344075-6 (Version None)
Quarter: 2012Q2

REPORT INFORMATION
  Report Type: 
  Country: None (occurrence: None)
  Receive Date: 20120508
  Receipt Date: 20110114
  Transmission Date: 20120825
  Serious: Yes (Other)
  Sender: FDA-Public Use
  Company Number: US-TEVA-2011000249

PATIENT
  Sex: Female

DRUGS (2)
  1. TREANDA [Suspect]
     Route: 042
  2. RITUXIMAB [Concomitant]

REACTIONS (1)
  - RASH [None]
